FAERS Safety Report 24929153 (Version 3)
Quarter: 2025Q1

REPORT INFORMATION
  Report Type: Spontaneous
  Country: RU (occurrence: RU)
  Receive Date: 20250205
  Receipt Date: 20250314
  Transmission Date: 20250408
  Serious: Yes (Death, Other)
  Sender: MERCK SHARP & DOHME LLC
  Company Number: None

PATIENT
  Age: 74 Year
  Sex: Male

DRUGS (9)
  1. KEYTRUDA [Suspect]
     Active Substance: PEMBROLIZUMAB
     Indication: Non-small cell lung cancer metastatic
     Dosage: DOSE DESCRIPTION : 200 MG IV 1 EVERY 21 DAYS
     Route: 042
     Dates: start: 20241122, end: 20250104
  2. PEMETREXED [Concomitant]
     Active Substance: PEMETREXED
     Dates: start: 20241122, end: 20250104
  3. CARBOPLATIN [Concomitant]
     Active Substance: CARBOPLATIN
     Dates: start: 20241122, end: 20250104
  4. FOLIC ACID [Concomitant]
     Active Substance: FOLIC ACID
     Dosage: DOSE DESCRIPTION : 1000 MICROGRAM
     Route: 048
     Dates: start: 20241120, end: 20250116
  5. DEXAMETHASONE [Concomitant]
     Active Substance: DEXAMETHASONE
     Route: 048
     Dates: start: 20241121, end: 20250105
  6. VITAMIN B12 [Concomitant]
     Active Substance: CYANOCOBALAMIN
     Route: 030
     Dates: start: 20241121
  7. CHLOROPYRAMINE HYDROCHLORIDE [Concomitant]
     Active Substance: CHLOROPYRAMINE HYDROCHLORIDE
     Route: 048
     Dates: start: 20241121, end: 20250104
  8. CARDIOMAGNYL [Concomitant]
     Active Substance: ASPIRIN\MAGNESIUM HYDROXIDE
     Dosage: DOSE DESCRIPTION: 75+15.2 MG, ONCE DAILY
     Route: 048
     Dates: start: 20180315
  9. BISOPROLOL FUMARATE [Concomitant]
     Active Substance: BISOPROLOL FUMARATE
     Route: 048
     Dates: start: 20231226

REACTIONS (1)
  - Sudden death [Fatal]

NARRATIVE: CASE EVENT DATE: 20250101
